FAERS Safety Report 16342330 (Version 2)
Quarter: 2019Q2

REPORT INFORMATION
  Report Type: Report from Study
  Country: US (occurrence: US)
  Receive Date: 20190522
  Receipt Date: 20190626
  Transmission Date: 20190711
  Serious: Yes (Other)
  Sender: FDA-Public Use
  Company Number: US-ROCHE-1934480

PATIENT
  Age: 74 Year
  Sex: Male
  Weight: 101.6 kg

DRUGS (37)
  1. VEMURAFENIB. [Suspect]
     Active Substance: VEMURAFENIB
     Indication: METASTATIC MALIGNANT MELANOMA
     Dosage: COMBINATION THERAPY?DATE OF MOST RECENT DOSE PRIOR TO AE ONSET: 03/APR/2017?DOSE OF LAST COMBINATION
     Route: 048
     Dates: start: 20170112
  2. DESONIDE. [Concomitant]
     Active Substance: DESONIDE
     Indication: RASH MACULO-PAPULAR
     Dosage: DOSE : 1 (UNIT OTHER)
     Route: 061
     Dates: start: 20170422
  3. CLINDAMYCIN. [Concomitant]
     Active Substance: CLINDAMYCIN
     Indication: RASH
     Dosage: DOSE : 1 (UNIT: OTHER)
     Route: 061
     Dates: start: 20170224
  4. CLINDAMYCIN. [Concomitant]
     Active Substance: CLINDAMYCIN
     Route: 061
     Dates: start: 20170606
  5. PERIDEX [CHLORHEXIDINE GLUCONATE] [Concomitant]
     Indication: TOOTHACHE
     Dosage: 1 OTHER
     Route: 048
     Dates: start: 20170509, end: 20170523
  6. ATORVASTATIN [Concomitant]
     Active Substance: ATORVASTATIN
     Indication: HYPERCHOLESTEROLAEMIA
     Route: 048
  7. PLAVIX [Concomitant]
     Active Substance: CLOPIDOGREL BISULFATE
     Indication: CORONARY ARTERY DISEASE
     Route: 048
     Dates: start: 20170426
  8. VASOTEC [ENALAPRILAT] [Concomitant]
     Active Substance: ENALAPRILAT
     Indication: HYPERTENSION
     Route: 048
  9. ENALAPRIL [Concomitant]
     Active Substance: ENALAPRIL
     Indication: HYPERTENSION
     Route: 048
  10. HCTZ [Concomitant]
     Active Substance: HYDROCHLOROTHIAZIDE
     Indication: HYPERTENSION
     Route: 048
  11. HYDROXYZINE [Concomitant]
     Active Substance: HYDROXYZINE HYDROCHLORIDE
     Indication: URTICARIA
     Route: 048
     Dates: start: 20170209
  12. KETOCONAZOLE. [Concomitant]
     Active Substance: KETOCONAZOLE
     Indication: RASH
     Dosage: DOSE : 1 (UNIT : OTHER)
     Route: 061
     Dates: start: 20170119
  13. LASIX [Concomitant]
     Active Substance: FUROSEMIDE
     Indication: OEDEMA
     Route: 048
     Dates: start: 20170324, end: 20170411
  14. TRIAMCINOLONE [Concomitant]
     Active Substance: TRIAMCINOLONE
     Indication: DERMATITIS ACNEIFORM
     Dosage: DOSE : 1 (UNIT : OTHER)
     Route: 061
     Dates: start: 20170110, end: 20170606
  15. VASERETIC [Concomitant]
     Active Substance: ENALAPRIL MALEATE\HYDROCHLOROTHIAZIDE
     Indication: HYPERTENSION
     Route: 048
  16. MINOCYCLINE [Concomitant]
     Active Substance: MINOCYCLINE\MINOCYCLINE HYDROCHLORIDE
     Indication: RASH
     Route: 048
     Dates: start: 20170105
  17. TYLENOL WITH CODEINE [Concomitant]
     Active Substance: ACETAMINOPHEN\CODEINE PHOSPHATE
     Indication: TOOTHACHE
     Route: 048
     Dates: start: 20170509, end: 20170523
  18. COBIMETINIB. [Suspect]
     Active Substance: COBIMETINIB
     Indication: METASTATIC MALIGNANT MELANOMA
     Dosage: RUN IN
     Route: 048
     Dates: start: 20161215
  19. TRIAMCINOLONE [Concomitant]
     Active Substance: TRIAMCINOLONE
     Indication: RASH
     Dosage: INFLAMMATORY PAPULES ACNEIFORM ERUPTION?(FACE,SCALP,NECK,UPPER BACK,CHEST)?DOSE : 1 (UNIT : OTHER)
     Route: 061
     Dates: start: 20170207
  20. KETOCONAZOLE. [Concomitant]
     Active Substance: KETOCONAZOLE
     Indication: RASH MACULO-PAPULAR
     Dosage: DOSE : 1 (UNIT : OTHER)
     Route: 061
     Dates: start: 20170105
  21. ATEZOLIZUMAB. [Suspect]
     Active Substance: ATEZOLIZUMAB
     Indication: METASTATIC MALIGNANT MELANOMA
     Dosage: DATE OF MOST RECENT DOSE PRIOR TO SQUAMOUS CELL CARCINOMA (RT DORSAL FOREARM) ONSET: 25/APR/2017.?DA
     Route: 042
     Dates: start: 20170112
  22. LASIX [Concomitant]
     Active Substance: FUROSEMIDE
     Route: 048
     Dates: start: 20170411
  23. KETOCONAZOLE. [Concomitant]
     Active Substance: KETOCONAZOLE
     Dosage: DOSE : 1 (UNIT : OTHER)
     Route: 061
     Dates: start: 20170422
  24. FISH OIL [Concomitant]
     Active Substance: FISH OIL
     Indication: HYPERCHOLESTEROLAEMIA
     Route: 048
  25. DESONIDE. [Concomitant]
     Active Substance: DESONIDE
     Indication: RASH
     Dosage: DOSE : 1 (UNIT OTHER)
     Route: 061
     Dates: start: 20170105, end: 20180410
  26. BRIMONIDINE [Concomitant]
     Active Substance: BRIMONIDINE TARTRATE
     Dosage: 1 DROP
     Route: 047
     Dates: start: 20170316
  27. K-DUR [Concomitant]
     Active Substance: POTASSIUM CHLORIDE
     Indication: BLOOD POTASSIUM DECREASED
     Dosage: DOSE - 20 OTHER
     Route: 048
     Dates: start: 20170404, end: 20171121
  28. MINOCYCLINE [Concomitant]
     Active Substance: MINOCYCLINE\MINOCYCLINE HYDROCHLORIDE
     Route: 048
     Dates: start: 20170627
  29. VEMURAFENIB. [Suspect]
     Active Substance: VEMURAFENIB
     Indication: METASTATIC MALIGNANT MELANOMA
     Dosage: RUN IN PERIOD?960 MG ORALLY BID FOR 21 DAYS, THEN VEMURAFENIB 720 MG ORALLY BID FOR 7 DAYS
     Route: 048
     Dates: start: 20161215
  30. TRIAMCINOLONE [Concomitant]
     Active Substance: TRIAMCINOLONE
     Dosage: 1 UNIT
     Route: 061
     Dates: start: 20170718
  31. MINOCYCLINE [Concomitant]
     Active Substance: MINOCYCLINE\MINOCYCLINE HYDROCHLORIDE
     Indication: RASH
     Route: 048
     Dates: start: 20170627
  32. CLINDAMYCIN. [Concomitant]
     Active Substance: CLINDAMYCIN
     Indication: TOOTH EXTRACTION
     Route: 048
     Dates: start: 20170509, end: 20170516
  33. COBIMETINIB. [Suspect]
     Active Substance: COBIMETINIB
     Indication: METASTATIC MALIGNANT MELANOMA
     Dosage: COMBINATION THERAPY?DOSE OF LAST COMBO COBIMETINIB TAKEN: 40 MG?ON 16/JUL/2018, SHE RECEIVED DATE OF
     Route: 048
     Dates: start: 20170112
  34. ASPIRIN [ACETYLSALICYLIC ACID] [Concomitant]
     Active Substance: ASPIRIN
     Indication: HEADACHE
     Route: 048
  35. HYDROXYZINE [Concomitant]
     Active Substance: HYDROXYZINE HYDROCHLORIDE
     Indication: PRURITUS
  36. TRAMADOL. [Concomitant]
     Active Substance: TRAMADOL
     Indication: PAIN
     Route: 048
     Dates: start: 20170513, end: 20170513
  37. MAXITROL [Concomitant]
     Active Substance: DEXAMETHASONE\NEOMYCIN SULFATE\POLYMYXIN B SULFATE
     Indication: BLEPHARITIS
     Route: 047
     Dates: start: 20180626

REACTIONS (4)
  - Squamous cell carcinoma [Recovered/Resolved]
  - Keratoacanthoma [Recovered/Resolved]
  - Squamous cell carcinoma [Recovered/Resolved]
  - Squamous cell carcinoma [Recovered/Resolved]

NARRATIVE: CASE EVENT DATE: 20170509
